FAERS Safety Report 6919988-X (Version None)
Quarter: 2010Q3

REPORT INFORMATION
  Report Type: 
  Country: None (occurrence: None)
  Receive Date: 20100811
  Receipt Date: 20100803
  Transmission Date: 20110219
  Serious: Yes (Other)
  Sender: FDA-Public Use
  Company Number: BR-ROCHE-719649

PATIENT

DRUGS (2)
  1. AVASTIN [Suspect]
     Indication: RENAL CANCER METASTATIC
     Route: 065
     Dates: start: 20100101
  2. PEGASYS [Concomitant]
     Indication: RENAL CANCER METASTATIC
     Dates: start: 20100101

REACTIONS (2)
  - LUNG INFILTRATION [None]
  - PULMONARY CAVITATION [None]
